FAERS Safety Report 9066291 (Version 1)
Quarter: 2013Q1

REPORT INFORMATION
  Report Type: Report from Study
  Country: US (occurrence: US)
  Receive Date: 20130129
  Receipt Date: 20130129
  Transmission Date: 20140127
  Serious: No
  Sender: FDA-Public Use
  Company Number: US-ABBOTT-12P-163-0951794-00

PATIENT
  Age: 62 None
  Sex: Female
  Weight: 70.37 kg

DRUGS (9)
  1. HUMIRA 40 MG/0.8 ML PEN [Suspect]
     Indication: RHEUMATOID ARTHRITIS
     Dates: start: 2005, end: 201112
  2. CALCIUM [Suspect]
     Indication: VITAMIN SUPPLEMENTATION
  3. METHOTREXATE [Concomitant]
     Indication: RHEUMATOID ARTHRITIS
  4. PRAVASTATIN [Concomitant]
     Indication: PRODUCT USED FOR UNKNOWN INDICATION
  5. LEVOTHYROXINE [Concomitant]
     Indication: HYPOTHYROIDISM
  6. FOLIC ACID [Concomitant]
     Indication: VITAMIN SUPPLEMENTATION
  7. ESTRACE [Concomitant]
     Indication: HORMONE REPLACEMENT THERAPY
  8. UNKNOWN MEDICATION [Concomitant]
     Indication: HYPERSENSITIVITY
  9. UNKNOWN VITAMINS [Concomitant]
     Indication: MINERAL SUPPLEMENTATION

REACTIONS (10)
  - Mycobacterium tuberculosis complex test positive [Unknown]
  - Hepatic enzyme increased [Unknown]
  - Musculoskeletal pain [Recovered/Resolved]
  - Influenza like illness [Recovered/Resolved]
  - Joint range of motion decreased [Recovered/Resolved]
  - Restlessness [Recovered/Resolved]
  - Musculoskeletal pain [Recovering/Resolving]
  - Crystal urine present [Recovered/Resolved]
  - Vitamin D decreased [Unknown]
  - Stress [Unknown]
